FAERS Safety Report 21484166 (Version 1)
Quarter: 2022Q4

REPORT INFORMATION
  Report Type: Spontaneous
  Country: US (occurrence: US)
  Receive Date: 20221020
  Receipt Date: 20221020
  Transmission Date: 20230113
  Serious: Yes (Hospitalization, Other)
  Sender: FDA-Public Use
  Company Number: US-MLMSERVICE-20221010-3849022-1

PATIENT
  Age: 25 Year
  Sex: Female

DRUGS (1)
  1. PAROXETINE [Suspect]
     Active Substance: PAROXETINE
     Indication: Product used for unknown indication
     Dosage: 2100 MG, (TOTAL)
     Route: 065

REACTIONS (7)
  - Intentional overdose [Unknown]
  - Suicide attempt [Unknown]
  - Insomnia [Recovering/Resolving]
  - Syncope [Unknown]
  - Hallucination, auditory [Recovering/Resolving]
  - Tremor [Recovering/Resolving]
  - Long QT syndrome [Recovering/Resolving]
